FAERS Safety Report 23523728 (Version 2)
Quarter: 2024Q3

REPORT INFORMATION
  Report Type: Spontaneous
  Country: US (occurrence: US)
  Receive Date: 20240214
  Receipt Date: 20240926
  Transmission Date: 20241016
  Serious: No
  Sender: TEVA
  Company Number: US-TEVA-VS-3157311

PATIENT
  Age: 75 Year
  Sex: Female

DRUGS (1)
  1. ACTIQ [Suspect]
     Active Substance: FENTANYL CITRATE
     Indication: Breakthrough pain
     Dosage: 400 MCG- 800 MCG
     Route: 065
     Dates: start: 2003, end: 2018

REACTIONS (1)
  - Dental caries [Unknown]
